FAERS Safety Report 8166880-1 (Version None)
Quarter: 2012Q1

REPORT INFORMATION
  Report Type: 
  Country: None (occurrence: None)
  Receive Date: 20120103
  Receipt Date: 20111021
  Transmission Date: 20120608
  Serious: No
  Sender: FDA-Public Use
  Company Number: AE-2011-002562

PATIENT
  Age: 57 Year
  Sex: Female

DRUGS (6)
  1. RIBAVIRIN [Concomitant]
  2. AMLODIPINE [Concomitant]
  3. PEGASYS [Concomitant]
  4. INCIVEK [Suspect]
     Dosage: 2250 MG (750 MG, 1 IN 8 HR), ORAL
     Route: 048
     Dates: start: 20110824
  5. LOSARTAN POTASSIUM [Concomitant]
  6. HYDROCHLOROTHIAZIDE [Concomitant]

REACTIONS (1)
  - BRONCHITIS [None]
